FAERS Safety Report 4862767-8 (Version None)
Quarter: 2005Q4

REPORT INFORMATION
  Report Type: 
  Country: None (occurrence: None)
  Receive Date: 20051221
  Receipt Date: 20051214
  Transmission Date: 20060501
  Serious: Yes (Death, Hospitalization)
  Sender: FDA-Public Use
  Company Number: US-JNJFOC-20051005272

PATIENT
  Sex: Female
  Weight: 45.36 kg

DRUGS (8)
  1. RISPERDAL [Suspect]
     Route: 048
  2. RISPERDAL [Suspect]
     Route: 048
  3. TYLENOL ARTHRITIS [Concomitant]
     Indication: ARTHRITIS
  4. CALCIUM D [Concomitant]
  5. CALCIUM D [Concomitant]
  6. CALCIUM D [Concomitant]
     Indication: NUTRITIONAL SUPPORT
  7. ATIVAN [Concomitant]
     Indication: SLEEP DISORDER THERAPY
  8. NIACIN [Concomitant]
     Route: 048

REACTIONS (3)
  - FALL [None]
  - HYPERTENSION [None]
  - MULTI-ORGAN FAILURE [None]
